FAERS Safety Report 6068370-9 (Version None)
Quarter: 2009Q1

REPORT INFORMATION
  Report Type: 
  Country: None (occurrence: None)
  Receive Date: 20090206
  Receipt Date: 20090129
  Transmission Date: 20090719
  Serious: Yes (Other)
  Sender: FDA-Public Use
  Company Number: PHHO2009IT01581

PATIENT
  Sex: Female
  Weight: 49 kg

DRUGS (2)
  1. TASIGNA [Suspect]
     Indication: CHRONIC MYELOID LEUKAEMIA
     Dosage: 300 MG
     Route: 048
  2. EPOGEN [Concomitant]

REACTIONS (2)
  - ARTERIAL DISORDER [None]
  - INTERMITTENT CLAUDICATION [None]
